FAERS Safety Report 24842123 (Version 1)
Quarter: 2025Q1

REPORT INFORMATION
  Report Type: Spontaneous
  Country: CN (occurrence: CN)
  Receive Date: 20250115
  Receipt Date: 20250115
  Transmission Date: 20250408
  Serious: Yes (Death, Hospitalization)
  Sender: STRIDES
  Company Number: CN-STRIDES ARCOLAB LIMITED-2025SP000505

PATIENT
  Age: 55 Year
  Sex: Male

DRUGS (20)
  1. ETOPOSIDE [Suspect]
     Active Substance: ETOPOSIDE
     Indication: Metastases to lymph nodes
     Route: 065
  2. ETOPOSIDE [Suspect]
     Active Substance: ETOPOSIDE
     Indication: Metastases to pleura
  3. ETOPOSIDE [Suspect]
     Active Substance: ETOPOSIDE
     Indication: Metastases to bone
  4. ETOPOSIDE [Suspect]
     Active Substance: ETOPOSIDE
     Indication: Malignant neoplasm of thorax
  5. CATEQUENTINIB [Suspect]
     Active Substance: CATEQUENTINIB
     Indication: Metastases to lymph nodes
     Route: 065
  6. CATEQUENTINIB [Suspect]
     Active Substance: CATEQUENTINIB
     Indication: Metastases to pleura
  7. CATEQUENTINIB [Suspect]
     Active Substance: CATEQUENTINIB
     Indication: Metastases to bone
  8. CATEQUENTINIB [Suspect]
     Active Substance: CATEQUENTINIB
     Indication: Malignant neoplasm of thorax
  9. PENPULIMAB [Suspect]
     Active Substance: PENPULIMAB
     Indication: Metastases to lymph nodes
     Route: 065
  10. PENPULIMAB [Suspect]
     Active Substance: PENPULIMAB
     Indication: Metastases to pleura
     Route: 065
  11. PENPULIMAB [Suspect]
     Active Substance: PENPULIMAB
     Indication: Metastases to bone
  12. PENPULIMAB [Suspect]
     Active Substance: PENPULIMAB
     Indication: Malignant neoplasm of thorax
  13. SINTILIMAB [Suspect]
     Active Substance: SINTILIMAB
     Indication: Metastases to lymph nodes
     Route: 065
  14. SINTILIMAB [Suspect]
     Active Substance: SINTILIMAB
     Indication: Metastases to pleura
  15. SINTILIMAB [Suspect]
     Active Substance: SINTILIMAB
     Indication: Metastases to bone
  16. SINTILIMAB [Suspect]
     Active Substance: SINTILIMAB
     Indication: Malignant neoplasm of thorax
  17. CISPLATIN [Suspect]
     Active Substance: CISPLATIN
     Indication: Metastases to lymph nodes
     Route: 065
  18. CISPLATIN [Suspect]
     Active Substance: CISPLATIN
     Indication: Metastases to pleura
  19. CISPLATIN [Suspect]
     Active Substance: CISPLATIN
     Indication: Metastases to bone
  20. CISPLATIN [Suspect]
     Active Substance: CISPLATIN
     Indication: Malignant neoplasm of thorax

REACTIONS (4)
  - Death [Fatal]
  - Metastases to liver [Unknown]
  - Malignant neoplasm progression [Unknown]
  - Drug ineffective for unapproved indication [Unknown]
